FAERS Safety Report 11510715 (Version 1)
Quarter: 2015Q3

REPORT INFORMATION
  Report Type: Spontaneous
  Country: FR (occurrence: FR)
  Receive Date: 20150915
  Receipt Date: 20150915
  Transmission Date: 20151125
  Serious: Yes (Hospitalization)
  Sender: FDA-Public Use
  Company Number: FR-TEVA-591997ISR

PATIENT
  Age: 70 Year
  Sex: Female

DRUGS (3)
  1. CARBOPLATINE HOSPIRA 420 MG [Suspect]
     Active Substance: CARBOPLATIN
     Indication: B-CELL LYMPHOMA
     Dosage: 120 MILLIGRAM DAILY; RESCUE TREATMENT. 420 MG AT DAY 2
     Dates: start: 20150530
  2. VANCOMYCINE SANDOZ [Suspect]
     Active Substance: VANCOMYCIN
     Indication: FEBRILE BONE MARROW APLASIA
     Dates: start: 201505
  3. ETOPOSIDE TEVA 100 MG [Suspect]
     Active Substance: ETOPOSIDE
     Indication: B-CELL LYMPHOMA
     Dosage: 100 MILLIGRAM DAILY; RESCUE TREATMENT. 100 MG AT DAY 1 AND DAY 2
     Dates: start: 20150529, end: 20150530

REACTIONS (4)
  - Melaena [Recovered/Resolved]
  - Renal failure [Unknown]
  - Multi-organ failure [Recovered/Resolved]
  - Hepatic failure [Unknown]

NARRATIVE: CASE EVENT DATE: 201505
